FAERS Safety Report 19315543 (Version 1)
Quarter: 2021Q2

REPORT INFORMATION
  Report Type: Report from Study
  Country: None (occurrence: US)
  Receive Date: 20210527
  Receipt Date: 20210527
  Transmission Date: 20210717
  Serious: Yes (Other)
  Sender: FDA-Public Use
  Company Number: US-ABBVIE-21K-163-3765499-00

PATIENT
  Age: 43 Year
  Sex: Female

DRUGS (2)
  1. IRON [Suspect]
     Active Substance: IRON
     Indication: PRODUCT USED FOR UNKNOWN INDICATION
     Route: 065
  2. HUMIRA [Suspect]
     Active Substance: ADALIMUMAB
     Indication: CROHN^S DISEASE
     Dosage: CF
     Route: 058
     Dates: start: 20201113

REACTIONS (9)
  - Vomiting [Recovered/Resolved]
  - Nausea [Recovered/Resolved]
  - Diarrhoea [Recovered/Resolved]
  - Decreased appetite [Recovered/Resolved]
  - Injection site pruritus [Recovered/Resolved]
  - Heavy menstrual bleeding [Unknown]
  - Constipation [Unknown]
  - Abdominal pain upper [Unknown]
  - Diarrhoea [Unknown]

NARRATIVE: CASE EVENT DATE: 202102
